FAERS Safety Report 9165562 (Version 1)
Quarter: 2013Q1

REPORT INFORMATION
  Report Type: Spontaneous
  Country: US (occurrence: US)
  Receive Date: 20130315
  Receipt Date: 20130315
  Transmission Date: 20140127
  Serious: No
  Sender: FDA-Public Use
  Company Number: US-GALDERMA-US-GDP-12413268

PATIENT
  Age: 34 Year
  Sex: Female
  Weight: 61 kg

DRUGS (2)
  1. TRI-LUMA [Suspect]
     Indication: PIGMENTATION DISORDER
     Route: 061
     Dates: start: 20120312, end: 20120312
  2. TRI-LUMA [Suspect]
     Route: 061
     Dates: start: 201110, end: 201110

REACTIONS (4)
  - Rash macular [Not Recovered/Not Resolved]
  - Skin burning sensation [Not Recovered/Not Resolved]
  - Skin exfoliation [Not Recovered/Not Resolved]
  - Dry skin [Not Recovered/Not Resolved]
